FAERS Safety Report 8730128 (Version 2)
Quarter: 2012Q4

REPORT INFORMATION
  Report Type: 
  Country: US (occurrence: US)
  Receive Date: 20120817
  Receipt Date: 20120920
  Transmission Date: 20130627
  Serious: No
  Sender: FDA-Public Use
  Company Number: US-B.I. PHARMACEUTICALS,INC./RIDGEFIELD-2011-BP-21629BP

PATIENT
  Age: 81 None
  Sex: Male
  Weight: 78.9 kg

DRUGS (9)
  1. PRADAXA [Suspect]
     Indication: ATRIAL FIBRILLATION
     Dosage: 150 mg
     Route: 048
     Dates: start: 2011
  2. CARVEDILOL [Concomitant]
     Indication: CARDIAC DISORDER
     Dates: start: 2001
  3. CRESTOR [Concomitant]
     Indication: BLOOD CHOLESTEROL INCREASED
     Dosage: 20 mg
     Dates: start: 2009
  4. LISINOPRIL [Concomitant]
     Indication: HYPERTENSION
     Dates: start: 2009
  5. OMEPRAZOLE [Concomitant]
     Indication: GASTROOESOPHAGEAL REFLUX DISEASE
     Dates: start: 2009
  6. INDAPAMIDE [Concomitant]
     Indication: OEDEMA
     Dates: start: 2009
  7. TYLENOL [Concomitant]
     Indication: BACK PAIN
     Dates: start: 2009
  8. IRON [Concomitant]
     Indication: ANAEMIA
     Dates: start: 2009
  9. VITAMIN D [Concomitant]
     Indication: ROUTINE HEALTH MAINTENANCE
     Dates: start: 2010

REACTIONS (4)
  - Abdominal pain [Not Recovered/Not Resolved]
  - Pruritus [Not Recovered/Not Resolved]
  - Anorectal discomfort [Recovered/Resolved]
  - Dyspnoea [Not Recovered/Not Resolved]
